FAERS Safety Report 8005568-4 (Version None)
Quarter: 2011Q4

REPORT INFORMATION
  Report Type: 
  Country: None (occurrence: None)
  Receive Date: 20111223
  Receipt Date: 20111220
  Transmission Date: 20120403
  Serious: Yes (Death)
  Sender: FDA-Public Use
  Company Number: CN-ROCHE-1024039

PATIENT

DRUGS (5)
  1. PREDNISONE TAB [Concomitant]
     Indication: LIVER TRANSPLANT
     Route: 048
  2. METHYLPREDNISOLONE [Concomitant]
     Indication: LIVER TRANSPLANT
     Route: 041
  3. MYCOPHENOLATE MOFETIL (CELLCEPT) [Suspect]
     Indication: LIVER TRANSPLANT
     Route: 048
  4. BASILIXIMAB [Concomitant]
     Indication: LIVER TRANSPLANT
  5. TACROLIMUS [Concomitant]
     Indication: LIVER TRANSPLANT

REACTIONS (2)
  - MULTI-ORGAN FAILURE [None]
  - INFECTION [None]
